FAERS Safety Report 15034191 (Version 1)
Quarter: 2018Q2

REPORT INFORMATION
  Report Type: Spontaneous
  Country: US (occurrence: US)
  Receive Date: 20180620
  Receipt Date: 20180620
  Transmission Date: 20180711
  Serious: No
  Sender: FDA-Public Use
  Company Number: US-TEVA-818531ACC

PATIENT
  Age: 58 Year
  Sex: Female
  Weight: 75.82 kg

DRUGS (1)
  1. PREDNISONE. [Suspect]
     Active Substance: PREDNISONE
     Dosage: FREQUENCY: TAPERING DOSES
     Route: 048
     Dates: start: 20170509, end: 201705

REACTIONS (3)
  - Peripheral swelling [Recovered/Resolved]
  - Erythema [Not Recovered/Not Resolved]
  - Erythema nodosum [Unknown]

NARRATIVE: CASE EVENT DATE: 201705
